FAERS Safety Report 21679807 (Version 4)
Quarter: 2023Q1

REPORT INFORMATION
  Report Type: Spontaneous
  Country: US (occurrence: US)
  Receive Date: 20221205
  Receipt Date: 20230301
  Transmission Date: 20230418
  Serious: No
  Sender: FDA-Public Use
  Company Number: US-BIOGEN-2022BI01141152

PATIENT
  Sex: Male

DRUGS (3)
  1. TYSABRI [Suspect]
     Active Substance: NATALIZUMAB
     Indication: Multiple sclerosis
     Route: 050
     Dates: start: 20120229, end: 20170906
  2. TYSABRI [Suspect]
     Active Substance: NATALIZUMAB
     Route: 050
     Dates: start: 20200212, end: 20200212
  3. TYSABRI [Suspect]
     Active Substance: NATALIZUMAB
     Route: 050
     Dates: start: 20220419

REACTIONS (7)
  - Product dose omission issue [Not Recovered/Not Resolved]
  - Drug ineffective [Unknown]
  - Gait inability [Not Recovered/Not Resolved]
  - Illness [Unknown]
  - Malaise [Recovered/Resolved]
  - Pyrexia [Unknown]
  - Vomiting [Unknown]

NARRATIVE: CASE EVENT DATE: 20220101
